FAERS Safety Report 14987825 (Version 1)
Quarter: 2018Q2

REPORT INFORMATION
  Report Type: Spontaneous
  Country: US (occurrence: US)
  Receive Date: 20180608
  Receipt Date: 20180608
  Transmission Date: 20180711
  Serious: No
  Sender: FDA-Public Use
  Company Number: US-BRISTOL-MYERS SQUIBB COMPANY-BMS-2018-049119

PATIENT
  Sex: Female

DRUGS (1)
  1. KENALOG-40 [Suspect]
     Active Substance: TRIAMCINOLONE ACETONIDE
     Indication: ARTHRALGIA
     Dosage: UNKNOWN
     Route: 065
     Dates: start: 20180404

REACTIONS (14)
  - Anxiety [Unknown]
  - Hyperventilation [Unknown]
  - Hypoaesthesia [Unknown]
  - Palpitations [Unknown]
  - Blood glucose increased [Unknown]
  - Blood potassium decreased [Unknown]
  - Dehydration [Unknown]
  - Migraine [Unknown]
  - Drug ineffective [Unknown]
  - Influenza [Unknown]
  - Renal pain [Unknown]
  - Hypertension [Unknown]
  - Paraesthesia [Unknown]
  - Insomnia [Unknown]

NARRATIVE: CASE EVENT DATE: 20180404
